FAERS Safety Report 4596995-6 (Version None)
Quarter: 2005Q1

REPORT INFORMATION
  Report Type: 
  Country: None (occurrence: None)
  Receive Date: 20050228
  Receipt Date: 20050215
  Transmission Date: 20050727
  Serious: Yes (Other)
  Sender: FDA-Public Use
  Company Number: 2005031633

PATIENT
  Sex: 0

DRUGS (3)
  1. CELEBREX [Suspect]
     Indication: ARTHRITIS
     Dosage: 200 MG
  2. METOPROLOL TARTRATE [Concomitant]
  3. NICOTINIC ACID [Concomitant]

REACTIONS (1)
  - NO ADVERSE DRUG EFFECT [None]
